FAERS Safety Report 8478287-8 (Version None)
Quarter: 2012Q2

REPORT INFORMATION
  Report Type: 
  Country: None (occurrence: None)
  Receive Date: 20120615
  Receipt Date: 20120530
  Transmission Date: 20120825
  Serious: Yes (Other)
  Sender: FDA-Public Use
  Company Number: DSA_57751_2012

PATIENT
  Age: 59 Year
  Sex: Female

DRUGS (4)
  1. ENALAPRIL MALEATE [Suspect]
     Indication: ESSENTIAL HYPERTENSION
     Dosage: 10 MG QD ORAL
     Route: 048
  2. AMLODIPINE [Concomitant]
  3. INDAPAMIDE [Concomitant]
  4. PRAZOSIN [Concomitant]

REACTIONS (1)
  - MUSCULOSKELETAL PAIN [None]
